FAERS Safety Report 5126569-X (Version None)
Quarter: 2006Q4

REPORT INFORMATION
  Report Type: 
  Country: None (occurrence: None)
  Receive Date: 20061012
  Receipt Date: 20061012
  Transmission Date: 20070319
  Serious: Yes (Life-Threatening)
  Sender: FDA-Public Use
  Company Number: None

PATIENT
  Age: 2 Year
  Sex: Male
  Weight: 13.8 kg

DRUGS (1)
  1. ONCASPAR [Suspect]
     Indication: ACUTE LYMPHOCYTIC LEUKAEMIA
     Dosage: 1400 UNITS   ONCE   IM
     Route: 030
     Dates: start: 20061003, end: 20061003

REACTIONS (4)
  - DRUG HYPERSENSITIVITY [None]
  - IRRITABILITY [None]
  - RASH PRURITIC [None]
  - SWELLING FACE [None]
